FAERS Safety Report 6615294-1 (Version None)
Quarter: 2010Q1

REPORT INFORMATION
  Report Type: 
  Country: None (occurrence: None)
  Receive Date: 20100226
  Receipt Date: 20100215
  Transmission Date: 20100710
  Serious: Yes (Other)
  Sender: FDA-Public Use
  Company Number: 230454J08CAN

PATIENT
  Age: 51 Year
  Sex: Female

DRUGS (6)
  1. REBIF [Suspect]
     Indication: RELAPSING-REMITTING MULTIPLE SCLEROSIS
     Dosage: 44 MCG, 3 IN 1 WEEKS, 22 MCG, 3 IN 1 WEEKS
     Dates: start: 20080101, end: 20100113
  2. REBIF [Suspect]
     Indication: RELAPSING-REMITTING MULTIPLE SCLEROSIS
     Dosage: 44 MCG, 3 IN 1 WEEKS, 22 MCG, 3 IN 1 WEEKS
     Dates: start: 20100115
  3. AVAPRO [Concomitant]
  4. MULTIVITAMIN (MULTIVITAMIN) [Concomitant]
  5. VITAMIN D [Concomitant]
  6. CALCIUM (CALCIUM) [Concomitant]

REACTIONS (11)
  - ALANINE AMINOTRANSFERASE INCREASED [None]
  - CARCINOID TUMOUR OF THE STOMACH [None]
  - CHILLS [None]
  - FATIGUE [None]
  - GASTRITIS [None]
  - HEADACHE [None]
  - INFLUENZA LIKE ILLNESS [None]
  - INJECTION SITE REACTION [None]
  - MYALGIA [None]
  - PERNICIOUS ANAEMIA [None]
  - WHITE BLOOD CELL COUNT DECREASED [None]
